FAERS Safety Report 21504974 (Version 1)
Quarter: 2022Q4

REPORT INFORMATION
  Report Type: Spontaneous
  Country: US (occurrence: US)
  Receive Date: 20221025
  Receipt Date: 20221025
  Transmission Date: 20230113
  Serious: Yes (Hospitalization)
  Sender: FDA-Public Use
  Company Number: US-JNJFOC-20221031199

PATIENT
  Age: 48 Year
  Sex: Female
  Weight: 72.6 kg

DRUGS (4)
  1. OPSUMIT [Suspect]
     Active Substance: MACITENTAN
     Indication: Pulmonary arterial hypertension
     Route: 048
     Dates: end: 20221010
  2. REMODULIN [Suspect]
     Active Substance: TREPROSTINIL
     Indication: Pulmonary arterial hypertension
     Route: 058
     Dates: start: 20220421
  3. REMODULIN [Suspect]
     Active Substance: TREPROSTINIL
     Route: 058
     Dates: start: 2022
  4. TADALAFIL [Concomitant]
     Active Substance: TADALAFIL

REACTIONS (12)
  - Pyelonephritis [Unknown]
  - Cough [Unknown]
  - Back pain [Unknown]
  - Pulmonary pain [Unknown]
  - Illness [Unknown]
  - Bedridden [Unknown]
  - Blood pressure increased [Unknown]
  - Decreased appetite [Unknown]
  - Weight decreased [Unknown]
  - Hyperhidrosis [Unknown]
  - Dyspnoea [Unknown]
  - Product dose omission issue [Unknown]

NARRATIVE: CASE EVENT DATE: 20221001
